FAERS Safety Report 6031451-X (Version None)
Quarter: 2008Q4

REPORT INFORMATION
  Report Type: 
  Country: None (occurrence: None)
  Receive Date: 20081230
  Receipt Date: 20080929
  Transmission Date: 20090506
  Serious: Yes (Other)
  Sender: FDA-Public Use
  Company Number: ZYD-AE-08-139

PATIENT
  Age: 47 Year
  Sex: Female

DRUGS (8)
  1. RIBAVIRIN [Suspect]
     Indication: HEPATITIS C VIRUS TEST
     Dosage: 600 MG - BID - PO
     Route: 048
     Dates: start: 20080805
  2. PEG INTERFERON A 2A [Suspect]
     Indication: HEPATITIS C VIRUS TEST
     Dosage: 180 MCG WEEKLY - SQ
     Dates: start: 20080805
  3. LEXAPRO [Concomitant]
  4. RISPERDAL [Concomitant]
  5. ATIVAN [Concomitant]
  6. SOMA [Concomitant]
  7. MORPHINE [Concomitant]
  8. PRILOSEC [Concomitant]

REACTIONS (2)
  - DEPRESSION [None]
  - SUICIDAL IDEATION [None]
